FAERS Safety Report 20354205 (Version 1)
Quarter: 2022Q1

REPORT INFORMATION
  Report Type: Spontaneous
  Country: FR (occurrence: FR)
  Receive Date: 20220120
  Receipt Date: 20220120
  Transmission Date: 20220423
  Serious: Yes (Other)
  Sender: FDA-Public Use
  Company Number: FR-BAUSCH-BL-2021-042338

PATIENT
  Age: 77 Year
  Sex: Male
  Weight: 81 kg

DRUGS (3)
  1. ZYCLARA [Suspect]
     Active Substance: IMIQUIMOD
     Indication: Actinic keratosis
     Route: 065
     Dates: start: 20211115, end: 20211208
  2. LERCANIDIPINE [Concomitant]
     Active Substance: LERCANIDIPINE
     Indication: Product used for unknown indication
     Route: 065
  3. HYDROCHLOROTHIAZIDE\LOSARTAN POTASSIUM [Concomitant]
     Active Substance: HYDROCHLOROTHIAZIDE\LOSARTAN POTASSIUM
     Indication: Product used for unknown indication
     Route: 065

REACTIONS (4)
  - Inflammation [Unknown]
  - Musculoskeletal stiffness [Unknown]
  - Erythema [Recovered/Resolved]
  - Fatigue [Recovered/Resolved]
